FAERS Safety Report 6679472-8 (Version None)
Quarter: 2010Q2

REPORT INFORMATION
  Report Type: 
  Country: None (occurrence: None)
  Receive Date: 20100413
  Receipt Date: 20100330
  Transmission Date: 20101027
  Serious: Yes (Hospitalization)
  Sender: FDA-Public Use
  Company Number: PHHY2010IE22605

PATIENT
  Sex: Male

DRUGS (2)
  1. CLOZARIL [Suspect]
     Indication: SCHIZOPHRENIA
     Dosage: 900 MG, UNK
     Dates: start: 20040203
  2. CLOZARIL [Suspect]
     Dosage: 150 MG, UNK
     Dates: end: 20100325

REACTIONS (1)
  - MENTAL DISORDER [None]
